FAERS Safety Report 7535381-3 (Version None)
Quarter: 2011Q2

REPORT INFORMATION
  Report Type: 
  Country: None (occurrence: None)
  Receive Date: 20110609
  Receipt Date: 20080401
  Transmission Date: 20111010
  Serious: Yes (Hospitalization, Other)
  Sender: FDA-Public Use
  Company Number: PHFR2008GB01125

PATIENT
  Sex: Male

DRUGS (4)
  1. CLOZAPINE [Suspect]
     Indication: SCHIZOPHRENIA
     Dosage: 600 MG, UNK
     Route: 048
     Dates: start: 20040628
  2. HYOSCINE [Concomitant]
     Indication: SALIVARY HYPERSECRETION
     Dosage: 300 UG, UNK
     Route: 048
  3. LEVOPROMAZIN [Concomitant]
     Indication: PSYCHOTIC DISORDER
     Dosage: 50 MG, BID
     Route: 048
  4. VALPROATE SODIUM [Concomitant]
     Indication: PSYCHOTIC DISORDER
     Dosage: 2000 MG, UNK
     Route: 048

REACTIONS (3)
  - MENTAL IMPAIRMENT [None]
  - RETCHING [None]
  - ABDOMINAL PAIN [None]
